FAERS Safety Report 18463069 (Version 1)
Quarter: 2020Q4

REPORT INFORMATION
  Report Type: Spontaneous
  Country: NZ (occurrence: NZ)
  Receive Date: 20201104
  Receipt Date: 20201104
  Transmission Date: 20210114
  Serious: Yes (Other)
  Sender: FDA-Public Use
  Company Number: NZ-PFIZER INC-2020427495

PATIENT
  Age: 27 Year
  Sex: Female

DRUGS (1)
  1. IBRANCE [Suspect]
     Active Substance: PALBOCICLIB

REACTIONS (4)
  - Gastrointestinal haemorrhage [Unknown]
  - Crohn^s disease [Unknown]
  - Intestinal ulcer [Unknown]
  - Biliary obstruction [Unknown]
